FAERS Safety Report 15471980 (Version 1)
Quarter: 2018Q4

REPORT INFORMATION
  Report Type: Spontaneous
  Country: US (occurrence: US)
  Receive Date: 20181008
  Receipt Date: 20181008
  Transmission Date: 20190205
  Serious: No
  Sender: FDA-Public Use
  Company Number: US-CELGENEUS-USA-20181000361

PATIENT
  Age: 60 Year
  Sex: Male

DRUGS (4)
  1. OTEZLA [Suspect]
     Active Substance: APREMILAST
     Indication: DERMATITIS
     Route: 048
     Dates: start: 201804
  2. DUPIXENT [Concomitant]
     Active Substance: DUPILUMAB
     Indication: PSORIASIS
  3. DUPIXENT [Concomitant]
     Active Substance: DUPILUMAB
     Indication: DERMATITIS
     Route: 065
  4. OTEZLA [Suspect]
     Active Substance: APREMILAST
     Indication: PSORIASIS

REACTIONS (1)
  - Drug effect decreased [Unknown]

NARRATIVE: CASE EVENT DATE: 20181001
